FAERS Safety Report 9105227 (Version 2)
Quarter: 2013Q3

REPORT INFORMATION
  Report Type: Spontaneous
  Country: US (occurrence: US)
  Receive Date: 20130221
  Receipt Date: 20130906
  Transmission Date: 20140515
  Serious: Yes (Other)
  Sender: FDA-Public Use
  Company Number: CHPA2013US003128

PATIENT
  Age: 68 Year
  Sex: Female

DRUGS (4)
  1. THERAFLU NIGHTTIME SEVERE COLD + COUGH [Suspect]
     Dosage: UNK, UNK
  2. THERAFLU FLU AND SORE THROAT [Suspect]
     Indication: COUGH
     Dosage: 1 TO 2 TABLESPOONS, ONCE A DAY
     Route: 048
     Dates: start: 2011
  3. EXCEDRIN EXTRA STRENGTH [Suspect]
     Indication: INFLUENZA
     Dosage: 1 TO 2 DF, UNK
     Route: 048
  4. EXCEDRIN EXTRA STRENGTH [Suspect]
     Indication: HEADACHE

REACTIONS (7)
  - Secretion discharge [Not Recovered/Not Resolved]
  - Malaise [Not Recovered/Not Resolved]
  - Cough [Not Recovered/Not Resolved]
  - Increased upper airway secretion [Not Recovered/Not Resolved]
  - Breath sounds abnormal [Recovered/Resolved]
  - Arthralgia [Not Recovered/Not Resolved]
  - Back pain [Not Recovered/Not Resolved]
